FAERS Safety Report 5193948-4 (Version None)
Quarter: 2006Q4

REPORT INFORMATION
  Report Type: 
  Country: None (occurrence: None)
  Receive Date: 20061228
  Receipt Date: 20061221
  Transmission Date: 20070319
  Serious: Yes (Hospitalization)
  Sender: FDA-Public Use
  Company Number: FR-MERCK-0612FRA00081

PATIENT
  Age: 8 Year
  Sex: Male
  Weight: 22 kg

DRUGS (5)
  1. PRIMAXIN [Suspect]
     Route: 042
  2. NEFOPAM HYDROCHLORIDE [Suspect]
     Route: 051
     Dates: end: 20061212
  3. DROPERIDOL [Suspect]
     Route: 042
     Dates: start: 20061208, end: 20061212
  4. MORPHINE [Suspect]
     Route: 042
     Dates: start: 20061208
  5. KETAMINE HYDROCHLORIDE [Suspect]
     Route: 042
     Dates: start: 20061208, end: 20061212

REACTIONS (1)
  - GRAND MAL CONVULSION [None]
